FAERS Safety Report 8119882-5 (Version None)
Quarter: 2012Q1

REPORT INFORMATION
  Report Type: 
  Country: None (occurrence: None)
  Receive Date: 20120203
  Receipt Date: 20120119
  Transmission Date: 20120608
  Serious: Yes (Other)
  Sender: FDA-Public Use
  Company Number: CC-12-005

PATIENT
  Age: 44 Year
  Sex: Female

DRUGS (3)
  1. SIMVASTATIN [Concomitant]
  2. CLONIDINE [Suspect]
     Indication: HYPERTENSION
     Dosage: 0.3 MG;QW;TDER
  3. HYDROCHLOROTHIAZIDE [Concomitant]

REACTIONS (6)
  - CHEST DISCOMFORT [None]
  - BLOOD PRESSURE DECREASED [None]
  - CHEST PAIN [None]
  - CORONARY ARTERY OCCLUSION [None]
  - OVERDOSE [None]
  - CORONARY ARTERY STENOSIS [None]
